FAERS Safety Report 25034688 (Version 1)
Quarter: 2025Q1

REPORT INFORMATION
  Report Type: Spontaneous
  Country: US (occurrence: US)
  Receive Date: 20250304
  Receipt Date: 20250304
  Transmission Date: 20250409
  Serious: Yes (Death, Other)
  Sender: RECKITT BENCKISER
  Company Number: US-SANDOZ-SDZ2024US033092

PATIENT
  Age: 14 Year
  Sex: Male

DRUGS (3)
  1. DEXTROMETHORPHAN [Interacting]
     Active Substance: DEXTROMETHORPHAN
     Indication: Completed suicide
     Route: 065
  2. DEXTROMETHORPHAN [Interacting]
     Active Substance: DEXTROMETHORPHAN
     Indication: Drug abuse
  3. FLUOXETINE [Interacting]
     Active Substance: FLUOXETINE HYDROCHLORIDE
     Indication: Completed suicide
     Route: 065

REACTIONS (8)
  - Serotonin syndrome [Fatal]
  - Completed suicide [Fatal]
  - Drug abuse [Fatal]
  - Substance-induced psychotic disorder [Fatal]
  - Drug interaction [Fatal]
  - Toxicity to various agents [Fatal]
  - Compulsive sexual behaviour [Fatal]
  - Homicide [Fatal]
